FAERS Safety Report 12773620 (Version 2)
Quarter: 2016Q4

REPORT INFORMATION
  Report Type: Spontaneous
  Country: US (occurrence: US)
  Receive Date: 20160923
  Receipt Date: 20161219
  Transmission Date: 20170207
  Serious: No
  Sender: FDA-Public Use
  Company Number: US-ASTRAZENECA-2016SF00954

PATIENT
  Sex: Female
  Weight: 43.1 kg

DRUGS (1)
  1. TUDORZA PRESSAIR [Suspect]
     Active Substance: ACLIDINIUM BROMIDE
     Indication: CHRONIC OBSTRUCTIVE PULMONARY DISEASE
     Dosage: 400MCG, ONE PUFF TWICE PER DAY
     Route: 055
     Dates: start: 2015

REACTIONS (6)
  - Medication error [Unknown]
  - Device malfunction [Unknown]
  - Confusional state [Unknown]
  - Frustration tolerance decreased [Unknown]
  - Dysgeusia [Unknown]
  - Aggression [Unknown]
